FAERS Safety Report 23044666 (Version 5)
Quarter: 2024Q3

REPORT INFORMATION
  Report Type: Report from Study
  Country: CA (occurrence: CA)
  Receive Date: 20231009
  Receipt Date: 20240725
  Transmission Date: 20241016
  Serious: Yes (Other)
  Sender: TAKEDA
  Company Number: CA-TAKEDA-2023TUS033690

PATIENT
  Age: 61 Year
  Sex: Female

DRUGS (1)
  1. VEDOLIZUMAB [Suspect]
     Active Substance: VEDOLIZUMAB
     Indication: Crohn^s disease
     Dosage: 108 MILLIGRAM, 1/WEEK
     Route: 058
     Dates: start: 20211022

REACTIONS (8)
  - Crohn^s disease [Unknown]
  - Abdominal hernia [Unknown]
  - Stress [Unknown]
  - Diarrhoea [Unknown]
  - Abdominal pain lower [Unknown]
  - Injection site bruising [Unknown]
  - Off label use [Unknown]
  - Abdominal distension [Unknown]

NARRATIVE: CASE EVENT DATE: 20211022
